FAERS Safety Report 19011097 (Version 1)
Quarter: 2021Q1

REPORT INFORMATION
  Report Type: Spontaneous
  Country: FR (occurrence: FR)
  Receive Date: 20210316
  Receipt Date: 20210316
  Transmission Date: 20210420
  Serious: Yes (Hospitalization)
  Sender: FDA-Public Use
  Company Number: FR-TEVA-2021-FR-1889423

PATIENT
  Age: 72 Year
  Sex: Female

DRUGS (4)
  1. TAVANIC 500 MG, COMPRIME PELLICULE SECABLE [Suspect]
     Active Substance: LEVOFLOXACIN
     Indication: WOUND INFECTION
     Dosage: 1DOSAGEFORM
     Route: 048
     Dates: start: 202012
  2. MINOCYCLINE BASE [Suspect]
     Active Substance: MINOCYCLINE HYDROCHLORIDE
     Indication: WOUND INFECTION
     Dosage: 200MILLIGRAM
     Route: 048
     Dates: start: 202012, end: 20210219
  3. LINEZOLIDE [Suspect]
     Active Substance: LINEZOLID
     Indication: WOUND INFECTION
     Dosage: 1200MILLIGRAM
     Route: 048
     Dates: start: 20210201, end: 20210219
  4. TEICOPLANINE [Suspect]
     Active Substance: TEICOPLANIN
     Indication: WOUND INFECTION
     Dosage: 600MILLIGRAM
     Route: 042
     Dates: start: 202012, end: 20210201

REACTIONS (2)
  - Thrombocytopenia [Not Recovered/Not Resolved]
  - Neutropenia [Recovered/Resolved]

NARRATIVE: CASE EVENT DATE: 20210208
